FAERS Safety Report 5187334-0 (Version None)
Quarter: 2006Q4

REPORT INFORMATION
  Report Type: 
  Country: None (occurrence: None)
  Receive Date: 20061213
  Receipt Date: 20061127
  Transmission Date: 20070319
  Serious: Yes (Other)
  Sender: FDA-Public Use
  Company Number: US-2006-036802

PATIENT
  Age: 26 Year
  Sex: Female

DRUGS (7)
  1. BETASERON [Suspect]
     Indication: MULTIPLE SCLEROSIS
     Dosage: 2 MIU,  EVERY 2D, SUBCUTANEOUS
     Route: 058
     Dates: start: 20061114
  2. NEURONTIN [Concomitant]
  3. CELEXA [Concomitant]
  4. CARBAMAZEPINE [Concomitant]
  5. ELAVIL [Concomitant]
  6. TRAMADOL HCL [Concomitant]
  7. LISINOPRIL [Concomitant]

REACTIONS (1)
  - LOSS OF CONSCIOUSNESS [None]
